FAERS Safety Report 24395609 (Version 2)
Quarter: 2024Q4

REPORT INFORMATION
  Report Type: Spontaneous
  Country: US (occurrence: US)
  Receive Date: 20241004
  Receipt Date: 20241019
  Transmission Date: 20250115
  Serious: Yes (Life-Threatening, Hospitalization, Other)
  Sender: UNITED THERAPEUTICS
  Company Number: US-UNITED THERAPEUTICS-UNT-2024-030554

PATIENT
  Age: 22 Month
  Sex: Female

DRUGS (5)
  1. DINUTUXIMAB [Suspect]
     Active Substance: DINUTUXIMAB
     Indication: Product used for unknown indication
     Dosage: UNK, CYCLICAL (CYCLE 1)
     Route: 041
  2. DINUTUXIMAB [Suspect]
     Active Substance: DINUTUXIMAB
     Dosage: UNK, CYCLICAL (CYCLE 2)
     Route: 041
  3. CEFEPIME [Concomitant]
     Active Substance: CEFEPIME HYDROCHLORIDE
     Indication: Pyrexia
     Dosage: UNK
     Route: 041
     Dates: start: 20240508, end: 20240514
  4. CEFEPIME [Concomitant]
     Active Substance: CEFEPIME HYDROCHLORIDE
     Dosage: UNK
     Route: 041
  5. EFLORNITHINE [Concomitant]
     Active Substance: EFLORNITHINE
     Indication: Product used for unknown indication

REACTIONS (10)
  - Cardiac arrest [Recovered/Resolved]
  - Agonal respiration [Recovering/Resolving]
  - Acute pulmonary oedema [Recovering/Resolving]
  - Capillary leak syndrome [Recovering/Resolving]
  - Hypoxia [Recovering/Resolving]
  - Pain [Recovering/Resolving]
  - Agitation [Recovering/Resolving]
  - Complication associated with device [Recovered/Resolved]
  - Pyrexia [Recovering/Resolving]
  - Hypotension [Recovering/Resolving]

NARRATIVE: CASE EVENT DATE: 20240501
